FAERS Safety Report 5393539-6 (Version None)
Quarter: 2007Q3

REPORT INFORMATION
  Report Type: 
  Country: None (occurrence: None)
  Receive Date: 20070723
  Receipt Date: 20060804
  Transmission Date: 20080115
  Serious: No
  Sender: FDA-Public Use
  Company Number: A0615294A

PATIENT
  Age: 67 Year
  Sex: Female

DRUGS (10)
  1. AVANDIA [Suspect]
     Dosage: 4MG PER DAY
     Route: 048
  2. METFORMIN HCL [Concomitant]
  3. VYTORIN [Concomitant]
  4. DILTIAZEM [Concomitant]
  5. AVAPRO [Concomitant]
  6. ALTACE [Concomitant]
  7. ONE A DAY VITAMIN [Concomitant]
  8. ASCORBIC ACID [Concomitant]
  9. FOLIC ACID [Concomitant]
  10. ASPIRIN [Concomitant]

REACTIONS (1)
  - WEIGHT LOSS POOR [None]
